FAERS Safety Report 4326271-8 (Version None)
Quarter: 2004Q1

REPORT INFORMATION
  Report Type: 
  Country: None (occurrence: None)
  Receive Date: 20040324
  Receipt Date: 20040304
  Transmission Date: 20041129
  Serious: No
  Sender: FDA-Public Use
  Company Number: F04200400062

PATIENT
  Age: 63 Year
  Sex: Male

DRUGS (2)
  1. UROXATRAL-SLOW RELEASE- (ALFUZOSIN HYDROCHLORIDE) -TABLET-10 MG [Suspect]
     Indication: BENIGN PROSTATIC HYPERPLASIA
     Dosage: 10 MG OD; A FEW DAYS
     Route: 048
     Dates: start: 20031030, end: 20031101
  2. UROXATRAL-SLOW RELEASE- (ALFUZOSIN HYDROCHLORIDE) -TABLET-10 MG [Suspect]
     Indication: NOCTURIA
     Dosage: 10 MG OD; A FEW DAYS
     Route: 048
     Dates: start: 20031030, end: 20031101

REACTIONS (1)
  - CIRCULATORY COLLAPSE [None]
